FAERS Safety Report 10249555 (Version 1)
Quarter: 2014Q2

REPORT INFORMATION
  Report Type: Spontaneous
  Country: FR (occurrence: FR)
  Receive Date: 20140620
  Receipt Date: 20140620
  Transmission Date: 20141212
  Serious: Yes (Hospitalization)
  Sender: FDA-Public Use
  Company Number: FR-ELI_LILLY_AND_COMPANY-FR201406003281

PATIENT
  Age: 72 Year
  Sex: Male

DRUGS (2)
  1. ALIMTA [Suspect]
     Indication: LUNG ADENOCARCINOMA METASTATIC
     Dosage: 500 MG, CYCLICAL
     Route: 042
     Dates: start: 20140113, end: 20140318
  2. CARBOPLATINE [Concomitant]
     Indication: LUNG ADENOCARCINOMA METASTATIC
     Dosage: 10 DF, UNKNOWN
     Route: 042
     Dates: start: 20140113, end: 20140203

REACTIONS (10)
  - General physical health deterioration [Unknown]
  - Dysphagia [Unknown]
  - Renal failure [Unknown]
  - Anaemia [Recovering/Resolving]
  - Blood disorder [Unknown]
  - C-reactive protein increased [Unknown]
  - Oedema peripheral [Unknown]
  - Platelet count decreased [Unknown]
  - White blood cell count decreased [Unknown]
  - Off label use [Unknown]
